FAERS Safety Report 8166569-9 (Version None)
Quarter: 2012Q1

REPORT INFORMATION
  Report Type: 
  Country: None (occurrence: None)
  Receive Date: 20120227
  Receipt Date: 20111109
  Transmission Date: 20120608
  Serious: No
  Sender: FDA-Public Use
  Company Number: US-BRISTOL-MYERS SQUIBB COMPANY-16221723

PATIENT
  Sex: Female

DRUGS (1)
  1. TAXOL [Suspect]
     Dates: start: 20111108

REACTIONS (1)
  - EXTRAVASATION [None]
